FAERS Safety Report 5400283-5 (Version None)
Quarter: 2007Q3

REPORT INFORMATION
  Report Type: 
  Country: None (occurrence: None)
  Receive Date: 20070730
  Receipt Date: 20070720
  Transmission Date: 20080115
  Serious: Yes (Hospitalization)
  Sender: FDA-Public Use
  Company Number: US-ROCHE-508156

PATIENT
  Sex: Female

DRUGS (1)
  1. XELODA [Suspect]
     Indication: DRUG USE FOR UNKNOWN INDICATION
     Dosage: TREATED WITH XELODA MONOTHERAPY FOR 7 CYCLES
     Route: 065

REACTIONS (2)
  - NERVOUSNESS [None]
  - PRESSURE OF SPEECH [None]
